FAERS Safety Report 6497162-1 (Version None)
Quarter: 2009Q4

REPORT INFORMATION
  Report Type: 
  Country: None (occurrence: None)
  Receive Date: 20091215
  Receipt Date: 20090504
  Transmission Date: 20100525
  Serious: No
  Sender: FDA-Public Use
  Company Number: A0782368A

PATIENT
  Age: 65 Year
  Sex: Male

DRUGS (4)
  1. AVODART [Suspect]
     Indication: BENIGN PROSTATIC HYPERPLASIA
     Dosage: 1CAPL PER DAY
     Route: 048
     Dates: start: 20090224
  2. METFORMIN HCL [Concomitant]
  3. CRESTOR [Concomitant]
  4. FLOMAX [Concomitant]

REACTIONS (1)
  - PROSTATIC SPECIFIC ANTIGEN INCREASED [None]
